FAERS Safety Report 18723573 (Version 1)
Quarter: 2021Q1

REPORT INFORMATION
  Report Type: Spontaneous
  Country: US (occurrence: US)
  Receive Date: 20210108
  Receipt Date: 20210108
  Transmission Date: 20210419
  Serious: Yes (Death)
  Sender: FDA-Public Use
  Company Number: None

PATIENT
  Age: 92 Year
  Sex: Female

DRUGS (3)
  1. HYDROCHLOROTHIAZIDE 12.5MG [Concomitant]
     Active Substance: HYDROCHLOROTHIAZIDE
     Dates: start: 20200713
  2. DONEPEZIL 10MG [Concomitant]
     Active Substance: DONEPEZIL
     Dates: start: 20200421
  3. TASIGNA [Suspect]
     Active Substance: NILOTINIB
     Indication: CHRONIC MYELOID LEUKAEMIA
     Route: 048
     Dates: start: 20190528, end: 20201228

REACTIONS (1)
  - Death [None]

NARRATIVE: CASE EVENT DATE: 20201228
